FAERS Safety Report 16100053 (Version 2)
Quarter: 2019Q2

REPORT INFORMATION
  Report Type: Report from Study
  Country: CA (occurrence: CA)
  Receive Date: 20190321
  Receipt Date: 20190606
  Transmission Date: 20190711
  Serious: Yes (Other)
  Sender: FDA-Public Use
  Company Number: CA-JNJFOC-20190321885

PATIENT
  Age: 66 Year
  Sex: Female
  Weight: 115.6 kg

DRUGS (4)
  1. REMICADE [Suspect]
     Active Substance: INFLIXIMAB
     Indication: RHEUMATOID ARTHRITIS
     Dosage: STRENGTH = 100 MG
     Route: 042
     Dates: start: 20030214
  2. PREDNISONE. [Concomitant]
     Active Substance: PREDNISONE
     Route: 065
  3. METHOTREXATE. [Concomitant]
     Active Substance: METHOTREXATE
     Route: 065
  4. RAMIPRIL. [Concomitant]
     Active Substance: RAMIPRIL
     Route: 065

REACTIONS (4)
  - Mastectomy [Unknown]
  - Breast pain [Unknown]
  - Abscess [Recovering/Resolving]
  - Cyst [Recovering/Resolving]

NARRATIVE: CASE EVENT DATE: 2017
